FAERS Safety Report 13765161 (Version 1)
Quarter: 2017Q3

REPORT INFORMATION
  Report Type: Spontaneous
  Country: SE (occurrence: SE)
  Receive Date: 20170718
  Receipt Date: 20170718
  Transmission Date: 20171127
  Serious: Yes (Life-Threatening, Hospitalization, Other)
  Sender: FDA-Public Use
  Company Number: SE-PFIZER INC-2460269

PATIENT
  Age: 5 Year
  Sex: Female
  Weight: 15 kg

DRUGS (8)
  1. DEXAMETHASONE. [Concomitant]
     Active Substance: DEXAMETHASONE
     Dosage: 10 MG/M2, UNK
     Route: 048
     Dates: start: 20140605, end: 20140605
  2. NEURONTIN [Concomitant]
     Active Substance: GABAPENTIN
     Indication: NEURALGIA
     Dosage: 50 MG X 3
     Dates: start: 20140523
  3. NEURONTIN [Concomitant]
     Active Substance: GABAPENTIN
     Dosage: 160 MG X 3
     Dates: start: 20140527
  4. ZANTAC [Concomitant]
     Active Substance: RANITIDINE HYDROCHLORIDE
     Indication: GASTRITIS PROPHYLAXIS
     Dosage: 75 MG, X2
     Route: 048
     Dates: start: 20140515, end: 20140605
  5. VINCRISTINE SULFATE. [Suspect]
     Active Substance: VINCRISTINE SULFATE
     Indication: B PRECURSOR TYPE ACUTE LEUKAEMIA
     Dosage: 2 MG/M2, EVERY 7 DAYS X 3
     Route: 042
     Dates: start: 20140515, end: 20140605
  6. DEXAMETHASONE. [Concomitant]
     Active Substance: DEXAMETHASONE
     Indication: B PRECURSOR TYPE ACUTE LEUKAEMIA
     Dosage: 10 MG/M2, UNK
     Route: 048
     Dates: start: 20140515, end: 20140522
  7. DAUNORUBICINE [Concomitant]
     Active Substance: DAUNORUBICIN
     Indication: B PRECURSOR TYPE ACUTE LEUKAEMIA
     Dosage: 20 MG/M2, EVERY 7 DAYS X 3
     Route: 042
     Dates: start: 20140515, end: 20140605
  8. METHOTREXATE. [Concomitant]
     Active Substance: METHOTREXATE
     Indication: B PRECURSOR TYPE ACUTE LEUKAEMIA
     Dosage: 12 MG, UNK
     Route: 037
     Dates: start: 20140515

REACTIONS (7)
  - Pyrexia [Unknown]
  - Neuralgia [Unknown]
  - Pain [Unknown]
  - Fatigue [Unknown]
  - Acidosis [Unknown]
  - Posterior reversible encephalopathy syndrome [Recovering/Resolving]
  - Respiratory tract infection [Unknown]

NARRATIVE: CASE EVENT DATE: 20140515
